FAERS Safety Report 8549930-X (Version None)
Quarter: 2012Q3

REPORT INFORMATION
  Report Type: 
  Country: None (occurrence: None)
  Receive Date: 20120718
  Receipt Date: 20120703
  Transmission Date: 20120928
  Serious: Yes (Hospitalization)
  Sender: FDA-Public Use
  Company Number: 2012AP002098

PATIENT
  Age: 38 Year
  Sex: Male

DRUGS (20)
  1. QUETIAPINE FUMARATE [Suspect]
     Indication: SCHIZOAFFECTIVE DISORDER
     Dosage: 550;100 MG, HS, PO
     Route: 048
  2. EPHEDRINE [Concomitant]
  3. SUCCINYLCHOLINE CHLORIDE [Suspect]
     Indication: PRODUCT USED FOR UNKNOWN INDICATION
  4. HALOPERIDOL [Suspect]
     Indication: PRODUCT USED FOR UNKNOWN INDICATION
     Dosage: 4;5 MG BID, IV
     Route: 042
  5. DEXAMETHASONE [Suspect]
     Indication: PRODUCT USED FOR UNKNOWN INDICATION
     Dosage: 4 MG, Q8H, IV
     Route: 042
  6. PROPOFOL [Concomitant]
  7. FENTANYL CITRATE [Concomitant]
  8. ATENOLOL [Concomitant]
  9. DOCUSATE [Concomitant]
  10. VENLAFAXINE [Suspect]
     Indication: PRODUCT USED FOR UNKNOWN INDICATION
     Dosage: 150;75 MG, QD, PO
     Route: 048
  11. CEFAZOLIN [Concomitant]
  12. ZOLPIDEM [Concomitant]
  13. MIDAZOLAM [Concomitant]
  14. REMIFENTANIL [Concomitant]
  15. ARIPIPRAZOLE [Concomitant]
  16. PHENYLEPHRINE HCL [Concomitant]
  17. ONDANSETRON [Concomitant]
  18. TAMSULOSIN HCL [Concomitant]
  19. MIRTAZAPINE [Suspect]
     Indication: PRODUCT USED FOR UNKNOWN INDICATION
     Dosage: 45;15 MG, HS, PO
     Route: 048
  20. MORPHINE SULFATE [Concomitant]

REACTIONS (14)
  - CATATONIA [None]
  - MUSCLE RIGIDITY [None]
  - PARANOIA [None]
  - AGITATION [None]
  - SOCIAL AVOIDANT BEHAVIOUR [None]
  - RESTLESSNESS [None]
  - MUTISM [None]
  - BLOOD CREATINE PHOSPHOKINASE INCREASED [None]
  - LEUKOCYTOSIS [None]
  - BLOOD CREATINE PHOSPHOKINASE MB INCREASED [None]
  - HYPERTHERMIA [None]
  - GENERAL PHYSICAL HEALTH DETERIORATION [None]
  - WITHDRAWAL SYNDROME [None]
  - UNRESPONSIVE TO STIMULI [None]
